FAERS Safety Report 22155165 (Version 1)
Quarter: 2023Q1

REPORT INFORMATION
  Report Type: Spontaneous
  Country: US (occurrence: None)
  Receive Date: 20230329
  Receipt Date: 20230329
  Transmission Date: 20230417
  Serious: Yes (Hospitalization)
  Sender: FDA-Public Use
  Company Number: None

PATIENT
  Sex: Female

DRUGS (1)
  1. DEFERASIROX [Suspect]
     Active Substance: DEFERASIROX
     Indication: Chronic graft versus host disease
     Dosage: 375MG ONCE DAILY ORAL
     Route: 048
     Dates: start: 20230301

REACTIONS (1)
  - Dyspnoea [None]
